FAERS Safety Report 18717325 (Version 1)
Quarter: 2021Q1

REPORT INFORMATION
  Report Type: Spontaneous
  Country: US (occurrence: US)
  Receive Date: 20210108
  Receipt Date: 20210108
  Transmission Date: 20210419
  Serious: Yes (Other)
  Sender: FDA-Public Use
  Company Number: US-AMNEAL PHARMACEUTICALS-2020-AMRX-03396

PATIENT
  Age: 3 Year
  Sex: Female
  Weight: 14 kg

DRUGS (3)
  1. VIGABATRIN. [Suspect]
     Active Substance: VIGABATRIN
     Dosage: 17 MILLILITER; UNK
     Route: 048
     Dates: start: 2020, end: 202011
  2. VIGABATRIN. [Suspect]
     Active Substance: VIGABATRIN
     Dosage: 15 MILLILITER; UNK
     Route: 048
     Dates: start: 202011
  3. VIGABATRIN. [Suspect]
     Active Substance: VIGABATRIN
     Indication: INFANTILE SPASMS
     Dosage: 2 PACKETS IN 20ML, 1000MG TWICE A DAY
     Route: 048
     Dates: end: 2020

REACTIONS (2)
  - Blindness [Not Recovered/Not Resolved]
  - Cortical visual impairment [Not Recovered/Not Resolved]

NARRATIVE: CASE EVENT DATE: 202010
